FAERS Safety Report 19303084 (Version 1)
Quarter: 2021Q2

REPORT INFORMATION
  Report Type: Spontaneous
  Country: US (occurrence: US)
  Receive Date: 20210525
  Receipt Date: 20210525
  Transmission Date: 20210717
  Serious: Yes (Other)
  Sender: FDA-Public Use
  Company Number: US-CIPLA LTD.-2021US03692

PATIENT

DRUGS (7)
  1. BEVACIZUMAB. [Suspect]
     Active Substance: BEVACIZUMAB
     Indication: COLORECTAL CANCER STAGE III
     Dosage: 5 MG/M2, EVERY 2 WEEKS
     Route: 065
     Dates: start: 201812
  2. OXALIPLATIN. [Suspect]
     Active Substance: OXALIPLATIN
     Indication: COLORECTAL CANCER STAGE III
     Dosage: 85 MG/M2, EVERY 2 WEEKS, TWO CYCLES
     Route: 065
     Dates: start: 2016
  3. LEUCOVORIN CALCIUM. [Suspect]
     Active Substance: LEUCOVORIN CALCIUM
     Indication: COLORECTAL CANCER STAGE III
     Dosage: 400 MG/M2, EVERY 2 WEEKS, 2 CYCLES
     Route: 065
     Dates: start: 2016
  4. 5?FLUOROURACIL [FLUOROURACIL] [Suspect]
     Active Substance: FLUOROURACIL
     Indication: COLORECTAL CANCER STAGE III
     Dosage: 400 MG/M2, EVERY 2 WEEKS
     Route: 040
     Dates: start: 2016
  5. 5?FLUOROURACIL [FLUOROURACIL] [Suspect]
     Active Substance: FLUOROURACIL
     Dosage: 2400 MG/M2, EVERY TWO WEEKS
     Route: 065
     Dates: start: 201812
  6. 5?FLUOROURACIL [FLUOROURACIL] [Suspect]
     Active Substance: FLUOROURACIL
     Dosage: 2400 MG/M2, EVERY 2 WEEKS, 2 CYCLES
     Dates: start: 2016
  7. OXALIPLATIN. [Suspect]
     Active Substance: OXALIPLATIN
     Dosage: 85 MG/M2, EVERY 2 WEEKS, TWO CYCLES
     Route: 065
     Dates: start: 201812

REACTIONS (4)
  - Toxicity to various agents [Unknown]
  - Cytopenia [Unknown]
  - Mucosal inflammation [Unknown]
  - Neutropenia [Unknown]
